FAERS Safety Report 16839079 (Version 5)
Quarter: 2022Q1

REPORT INFORMATION
  Report Type: Spontaneous
  Country: US (occurrence: US)
  Receive Date: 20190923
  Receipt Date: 20220222
  Transmission Date: 20220424
  Serious: Yes (Disabling, Other)
  Sender: FDA-Public Use
  Company Number: US-GILEAD-2019-0429603

PATIENT
  Age: 60 Year
  Sex: Female
  Weight: 75.283 kg

DRUGS (17)
  1. VIREAD [Suspect]
     Active Substance: TENOFOVIR DISOPROXIL FUMARATE
     Indication: Hepatitis B
     Dosage: UNK
     Route: 048
     Dates: start: 20120713, end: 20140801
  2. BACLOFEN [Concomitant]
     Active Substance: BACLOFEN
  3. CYCLOBENZAPRINE [Concomitant]
     Active Substance: CYCLOBENZAPRINE
  4. LORATADINE [Concomitant]
     Active Substance: LORATADINE
     Indication: Hypersensitivity
  5. METHYLPREDNISOLONE [Concomitant]
     Active Substance: METHYLPREDNISOLONE
  6. ROPINIROLE HYDROCHLORIDE [Concomitant]
     Active Substance: ROPINIROLE HYDROCHLORIDE
  7. SIMVASTATIN [Concomitant]
     Active Substance: SIMVASTATIN
  8. ROGAINE [Concomitant]
     Active Substance: MINOXIDIL
  9. SPIRONOLACTONE [Concomitant]
     Active Substance: SPIRONOLACTONE
  10. ROSUVASTATIN [Concomitant]
     Active Substance: ROSUVASTATIN
  11. CLOBETASOL [Concomitant]
     Active Substance: CLOBETASOL
  12. HYDROCORTISONE [Concomitant]
     Active Substance: HYDROCORTISONE
  13. DOXYCYCLINE [Concomitant]
     Active Substance: DOXYCYCLINE
  14. BIMATOPROST [Concomitant]
     Active Substance: BIMATOPROST
  15. TEMAZEPAM [Concomitant]
     Active Substance: TEMAZEPAM
  16. AMITRIPTYLINE [Concomitant]
     Active Substance: AMITRIPTYLINE
  17. BIOTIN [Concomitant]
     Active Substance: BIOTIN

REACTIONS (16)
  - Osteoporosis [Not Recovered/Not Resolved]
  - Multiple fractures [Not Recovered/Not Resolved]
  - Foot fracture [Unknown]
  - Pain [Not Recovered/Not Resolved]
  - Quality of life decreased [Not Recovered/Not Resolved]
  - Anhedonia [Not Recovered/Not Resolved]
  - Migraine [Unknown]
  - Impaired work ability [Unknown]
  - Osteopenia [Not Recovered/Not Resolved]
  - General physical health deterioration [Unknown]
  - Emotional distress [Not Recovered/Not Resolved]
  - Economic problem [Not Recovered/Not Resolved]
  - Insomnia [Not Recovered/Not Resolved]
  - Depression [Not Recovered/Not Resolved]
  - Anxiety [Not Recovered/Not Resolved]
  - Rib fracture [Not Recovered/Not Resolved]

NARRATIVE: CASE EVENT DATE: 20130626
